FAERS Safety Report 21781344 (Version 1)
Quarter: 2022Q4

REPORT INFORMATION
  Report Type: Spontaneous
  Country: FR (occurrence: FR)
  Receive Date: 20221227
  Receipt Date: 20221227
  Transmission Date: 20230113
  Serious: Yes (Life-Threatening, Other)
  Sender: FDA-Public Use
  Company Number: FR-AMGEN-FRASP2022222280

PATIENT

DRUGS (12)
  1. PEGFILGRASTIM [Suspect]
     Active Substance: PEGFILGRASTIM
     Indication: Prophylaxis
     Dosage: AFTER EVERY CYCLE OF TREATMENT
     Route: 065
  2. TRASTUZUMAB [Suspect]
     Active Substance: TRASTUZUMAB
     Indication: HER2 positive breast cancer
     Dosage: LOADING DOSE OF 8MG/KG OVER 90MIN (MIN)
     Route: 040
  3. TRASTUZUMAB [Suspect]
     Active Substance: TRASTUZUMAB
     Dosage: MAINTENANCE DOSE OF 6MG/KG OVER 30-90MIN
     Route: 040
  4. TRASTUZUMAB [Suspect]
     Active Substance: TRASTUZUMAB
     Dosage: 600 MILLIGRAM
     Route: 058
  5. PERTUZUMAB [Concomitant]
     Active Substance: PERTUZUMAB
     Dosage: INITIAL DOSE OF 840MG OVER 60MIN
  6. PERTUZUMAB [Concomitant]
     Active Substance: PERTUZUMAB
     Dosage: 420MG OVER 30-60MIN
  7. CARBOPLATIN [Concomitant]
     Active Substance: CARBOPLATIN
     Dosage: AUC 6 MG/ML X MIN
  8. CARBOPLATIN [Concomitant]
     Active Substance: CARBOPLATIN
     Dosage: AUC 5 MG/ML X MIN
  9. CARBOPLATIN [Concomitant]
     Active Substance: CARBOPLATIN
     Dosage: AUC 4 MG/ML X MIN
  10. DOCETAXEL [Concomitant]
     Active Substance: DOCETAXEL
     Dosage: 75 MILLIMOLE PER SQUARE METRE
  11. DOCETAXEL [Concomitant]
     Active Substance: DOCETAXEL
     Dosage: 60 MILLIMOLE PER SQUARE METRE
  12. DOCETAXEL [Concomitant]
     Active Substance: DOCETAXEL
     Dosage: 50 MILLIMOLE PER SQUARE METRE

REACTIONS (20)
  - Thrombocytopenia [Unknown]
  - Breast cancer [Recovered/Resolved]
  - Left ventricular dysfunction [Recovered/Resolved]
  - Anaemia [Unknown]
  - Rash macular [Unknown]
  - Febrile neutropenia [Unknown]
  - Neutropenia [Unknown]
  - Diarrhoea [Unknown]
  - Neuropathy peripheral [Unknown]
  - Hypertransaminasaemia [Recovered/Resolved]
  - Infection [Unknown]
  - Rash [Unknown]
  - Alopecia [Unknown]
  - Stomatitis [Unknown]
  - Off label use [Unknown]
  - Vomiting [Unknown]
  - Asthenia [Unknown]
  - Nausea [Unknown]
  - Therapy non-responder [Unknown]
  - Therapy partial responder [Unknown]
